FAERS Safety Report 23962371 (Version 2)
Quarter: 2024Q2

REPORT INFORMATION
  Report Type: Spontaneous
  Country: CA (occurrence: CA)
  Receive Date: 20240611
  Receipt Date: 20240618
  Transmission Date: 20240715
  Serious: Yes (Other)
  Sender: FDA-Public Use
  Company Number: CA-PFIZER INC-2017348745

PATIENT
  Age: 52 Year
  Sex: Female

DRUGS (2)
  1. XALKORI [Suspect]
     Active Substance: CRIZOTINIB
     Indication: Non-small cell lung cancer metastatic
     Dosage: 250 MG, 2X/DAY
     Dates: start: 20170523, end: 20170809
  2. XALKORI [Suspect]
     Active Substance: CRIZOTINIB
     Dosage: 200 MG, 2X/DAY
     Dates: start: 20170523, end: 20170719

REACTIONS (4)
  - Hepatitis [Unknown]
  - Drug intolerance [Unknown]
  - Hypertransaminasaemia [Unknown]
  - Liver disorder [Unknown]
